FAERS Safety Report 4602914-6 (Version None)
Quarter: 2005Q1

REPORT INFORMATION
  Report Type: 
  Country: None (occurrence: None)
  Receive Date: 20050309
  Receipt Date: 20050304
  Transmission Date: 20050727
  Serious: Yes (Other)
  Sender: FDA-Public Use
  Company Number: PHNU2005DE01187

PATIENT
  Sex: Female

DRUGS (7)
  1. TEGRETOL [Suspect]
     Route: 048
     Dates: end: 20041007
  2. TEGRETOL [Suspect]
     Dosage: 400 MG/DAY
     Route: 048
     Dates: start: 20041008, end: 20041008
  3. TEGRETOL [Suspect]
     Dosage: 600 MG/DAY
     Route: 048
     Dates: start: 20041009, end: 20041110
  4. TEGRETOL [Suspect]
     Dosage: 400 MG/DAY
     Route: 048
     Dates: start: 20041111, end: 20041112
  5. TEGRETOL [Suspect]
     Dosage: 200 MG/DAY
     Route: 048
     Dates: start: 20041113, end: 20041116
  6. L-THYROXIN [Concomitant]
     Dosage: 100 NG, QD
     Route: 048
  7. BELOC ZOK [Concomitant]
     Dosage: 95 MG/DAY
     Route: 048
     Dates: start: 20041015

REACTIONS (10)
  - BLOOD POTASSIUM DECREASED [None]
  - CONFUSIONAL STATE [None]
  - GRAND MAL CONVULSION [None]
  - HEPATIC ENZYME INCREASED [None]
  - HYPERTENSIVE CRISIS [None]
  - HYPONATRAEMIA [None]
  - MENTAL RETARDATION SEVERITY UNSPECIFIED [None]
  - PARANOIA [None]
  - POSTICTAL STATE [None]
  - SUICIDAL IDEATION [None]
